FAERS Safety Report 9526894 (Version 5)
Quarter: 2014Q1

REPORT INFORMATION
  Report Type: Report from Study
  Country: AT (occurrence: AT)
  Receive Date: 20130916
  Receipt Date: 20140122
  Transmission Date: 20141002
  Serious: No
  Sender: FDA-Public Use
  Company Number: AT-GLAXOSMITHKLINE-B0921057A

PATIENT
  Age: 55 Year
  Sex: Female
  Weight: 35 kg

DRUGS (1)
  1. BENLYSTA [Suspect]
     Indication: SYSTEMIC LUPUS ERYTHEMATOSUS
     Dosage: 360MG PER DAY
     Route: 042
     Dates: start: 20130726

REACTIONS (5)
  - Peritoneal haematoma [Recovering/Resolving]
  - Hepatic enzyme increased [Unknown]
  - Gamma-glutamyltransferase increased [Not Recovered/Not Resolved]
  - Blood alkaline phosphatase increased [Not Recovered/Not Resolved]
  - Drug ineffective [Unknown]
